FAERS Safety Report 18498883 (Version 1)
Quarter: 2020Q4

REPORT INFORMATION
  Report Type: Spontaneous
  Country: GB (occurrence: GB)
  Receive Date: 20201113
  Receipt Date: 20201113
  Transmission Date: 20210114
  Serious: Yes (Other)
  Sender: FDA-Public Use
  Company Number: GB-SUN PHARMACEUTICAL INDUSTRIES LTD-2020RR-267578

PATIENT
  Age: 38 Year
  Sex: Female
  Weight: 83 kg

DRUGS (3)
  1. ZOLMITRIPTAN. [Concomitant]
     Active Substance: ZOLMITRIPTAN
     Indication: MIGRAINE
     Dosage: TWO TO FOUR TIMES A MONTH ()
     Route: 065
  2. SERTRALINE [Suspect]
     Active Substance: SERTRALINE HYDROCHLORIDE
     Indication: DEPRESSION SUICIDAL
     Dosage: 100 MILLIGRAMS, UNK
     Route: 048
     Dates: start: 20180510, end: 20200820
  3. DIAZEPAM. [Concomitant]
     Active Substance: DIAZEPAM
     Indication: PANIC ATTACK
     Dosage: VERY OCCASIONAL USE ()
     Route: 065

REACTIONS (4)
  - Deafness [Unknown]
  - Eustachian tube dysfunction [Recovering/Resolving]
  - Ear pain [Unknown]
  - Sinonasal obstruction [Recovering/Resolving]

NARRATIVE: CASE EVENT DATE: 20180915
